FAERS Safety Report 7339299-0 (Version None)
Quarter: 2011Q1

REPORT INFORMATION
  Report Type: 
  Country: None (occurrence: None)
  Receive Date: 20110301
  Receipt Date: 20110214
  Transmission Date: 20110831
  Serious: Yes (Congenital Anomaly, Other)
  Sender: FDA-Public Use
  Company Number: DSA_45027_2011

PATIENT
  Sex: Male

DRUGS (5)
  1. PRENATAL VITAMINS [Concomitant]
  2. TOPAMAX [Concomitant]
  3. OXYCODONE AND ACETAMINOPHEN [Concomitant]
  4. WELLBUTRIN [Suspect]
     Indication: SMOKING CESSATION THERAPY
     Dosage: 75 MG QD,  TRANSPLACENTAL
     Route: 064
     Dates: start: 20071201
  5. FLAGYL [Concomitant]

REACTIONS (5)
  - DEVELOPMENTAL DELAY [None]
  - MATERNAL DRUGS AFFECTING FOETUS [None]
  - GASTROINTESTINAL MALFORMATION [None]
  - MUSCULOSKELETAL DISORDER [None]
  - SMALL FOR DATES BABY [None]
